FAERS Safety Report 4854081-1 (Version None)
Quarter: 2005Q4

REPORT INFORMATION
  Report Type: 
  Country: None (occurrence: None)
  Receive Date: 20051213
  Receipt Date: 20051128
  Transmission Date: 20060501
  Serious: Yes (Death)
  Sender: FDA-Public Use
  Company Number: 2005S1011418

PATIENT
  Age: 71 Year
  Sex: Female
  Weight: 48.0813 kg

DRUGS (10)
  1. FENTANYL TRANSDERMAL SYSTEM [Suspect]
     Indication: PAIN
     Dosage: 50 MCG/HR;Q3D;TRANS
     Route: 062
     Dates: start: 20050804, end: 20050812
  2. FENTANYL TRANSDERMAL SYSTEM [Suspect]
     Indication: SPINAL COMPRESSION FRACTURE
     Dosage: 50 MCG/HR;Q3D;TRANS
     Route: 062
     Dates: start: 20050804, end: 20050812
  3. PARACETAMOL/HYDROCODONE BITARTRATE [Concomitant]
  4. ................... [Concomitant]
  5. LORAZEPAM [Concomitant]
  6. PETHIDINE [Concomitant]
  7. PREDISONE [Concomitant]
  8. MORPHINE [Concomitant]
  9. TRIMETHOBENZAMIDE HCL [Concomitant]
  10. FLUTICASONE PROPIONATE/SALMETEROL XINAFOATE [Concomitant]

REACTIONS (5)
  - CHRONIC OBSTRUCTIVE PULMONARY DISEASE [None]
  - DRUG TOXICITY [None]
  - FALL [None]
  - HIP FRACTURE [None]
  - RESPIRATORY DISTRESS [None]
